FAERS Safety Report 26116096 (Version 1)
Quarter: 2025Q4

REPORT INFORMATION
  Report Type: Spontaneous
  Country: EU (occurrence: EU)
  Receive Date: 20251203
  Receipt Date: 20251203
  Transmission Date: 20260118
  Serious: Yes (Other)
  Sender: Onesource Specialty Pharma
  Company Number: EU-STRIDES ARCOLAB LIMITED-2025OS001375

PATIENT
  Age: 80 Year
  Sex: Female

DRUGS (5)
  1. PIPERACILLIN SODIUM\TAZOBACTAM SODIUM [Suspect]
     Active Substance: PIPERACILLIN SODIUM\TAZOBACTAM SODIUM
     Indication: Escherichia bacteraemia
     Dosage: UNK
     Route: 065
  2. ERAVACYCLINE [Suspect]
     Active Substance: ERAVACYCLINE
     Indication: Escherichia bacteraemia
     Dosage: 1 MILLIGRAM/KILOGRAM, EVERY 12 HRS
     Route: 065
  3. ERAVACYCLINE [Suspect]
     Active Substance: ERAVACYCLINE
     Dosage: RESTARTED
     Route: 065
  4. LINEZOLID [Concomitant]
     Active Substance: LINEZOLID
     Indication: Escherichia bacteraemia
     Dosage: 600 MILLIGRAM
     Route: 065
  5. AMPHOTERICIN B [Concomitant]
     Active Substance: AMPHOTERICIN B
     Indication: Escherichia bacteraemia
     Dosage: 3 MILLIGRAM/KILOGRAM
     Route: 065

REACTIONS (1)
  - Drug-induced liver injury [Unknown]
